FAERS Safety Report 4831155-2 (Version None)
Quarter: 2005Q4

REPORT INFORMATION
  Report Type: 
  Country: None (occurrence: None)
  Receive Date: 20051114
  Receipt Date: 20051020
  Transmission Date: 20060501
  Serious: Yes (Congenital Anomaly)
  Sender: FDA-Public Use
  Company Number: 2005BH002541

PATIENT
  Age: 1 Day
  Sex: Male
  Weight: 3.18 kg

DRUGS (4)
  1. LORAZEPAM [Suspect]
     Indication: SCHIZOPHRENIA
     Dosage: 0.5 MG EVERY DAY TRPL
     Dates: end: 20050108
  2. HALDOL [Suspect]
     Dosage: 3 MG EVERY DAY TRPL
     Dates: start: 20040601
  3. CANNABIS [Concomitant]
  4. COCAINE [Concomitant]

REACTIONS (3)
  - DRUG EXPOSURE DURING PREGNANCY [None]
  - MATERNAL USE OF ILLICIT DRUGS [None]
  - TALIPES [None]
